FAERS Safety Report 12666153 (Version 1)
Quarter: 2016Q3

REPORT INFORMATION
  Report Type: Spontaneous
  Country: US (occurrence: US)
  Receive Date: 20160818
  Receipt Date: 20160818
  Transmission Date: 20161109
  Serious: No
  Sender: FDA-Public Use
  Company Number: US-JAZZ-2016-US-005736

PATIENT
  Sex: Male

DRUGS (23)
  1. XYREM [Suspect]
     Active Substance: SODIUM OXYBATE
     Dosage: 3.5 G, BID
     Route: 048
     Dates: start: 2016
  2. AMBIEN [Concomitant]
     Active Substance: ZOLPIDEM TARTRATE
  3. FUROSEMIDE. [Concomitant]
     Active Substance: FUROSEMIDE
  4. SULINDAC. [Concomitant]
     Active Substance: SULINDAC
  5. CYMBALTA [Concomitant]
     Active Substance: DULOXETINE HYDROCHLORIDE
  6. TOPAMAX [Concomitant]
     Active Substance: TOPIRAMATE
  7. METHADONE HCL [Concomitant]
     Active Substance: METHADONE HYDROCHLORIDE
  8. PROVIGIL [Concomitant]
     Active Substance: MODAFINIL
  9. GABAPENTIN. [Concomitant]
     Active Substance: GABAPENTIN
  10. METOPROLOL SUCCINATE. [Concomitant]
     Active Substance: METOPROLOL SUCCINATE
  11. OXYGEN. [Concomitant]
     Active Substance: OXYGEN
  12. XYREM [Suspect]
     Active Substance: SODIUM OXYBATE
     Dosage: 2.25 G, BID
     Route: 048
     Dates: start: 200709, end: 2009
  13. LORTAB [Concomitant]
     Active Substance: ACETAMINOPHEN\HYDROCODONE BITARTRATE
  14. MAXALT [Concomitant]
     Active Substance: RIZATRIPTAN BENZOATE
  15. TRICOR [Concomitant]
     Active Substance: FENOFIBRATE
  16. CLONAZEPAM. [Concomitant]
     Active Substance: CLONAZEPAM
  17. DILAUDID [Concomitant]
     Active Substance: HYDROMORPHONE HYDROCHLORIDE
  18. PRILOSEC [Concomitant]
     Active Substance: OMEPRAZOLE MAGNESIUM
  19. SEROQUEL [Concomitant]
     Active Substance: QUETIAPINE FUMARATE
  20. COUMADIN [Concomitant]
     Active Substance: WARFARIN SODIUM
  21. XYREM [Suspect]
     Active Substance: SODIUM OXYBATE
     Indication: SLEEP DISORDER
     Dosage: 0.5 G, BID
     Route: 048
     Dates: start: 200708, end: 200709
  22. XYREM [Suspect]
     Active Substance: SODIUM OXYBATE
     Dosage: 2.25 G, BID
     Route: 048
     Dates: start: 201602, end: 2016
  23. CYCLOBENZAPRINE [Concomitant]
     Active Substance: CYCLOBENZAPRINE

REACTIONS (1)
  - Intentional product use issue [Unknown]
